FAERS Safety Report 18092634 (Version 3)
Quarter: 2020Q3

REPORT INFORMATION
  Report Type: Spontaneous
  Country: US (occurrence: US)
  Receive Date: 20200730
  Receipt Date: 20200811
  Transmission Date: 20201103
  Serious: Yes (Hospitalization)
  Sender: FDA-Public Use
  Company Number: US-HORIZON-KRY-1021-2020

PATIENT
  Age: 54 Year
  Sex: Male

DRUGS (3)
  1. METHOTREXATE. [Suspect]
     Active Substance: METHOTREXATE
     Indication: IMMUNOMODULATORY THERAPY
     Dosage: 7.5 MG WEEKLY
     Route: 048
     Dates: start: 20200526, end: 20200721
  2. FOLIC ACID. [Concomitant]
     Active Substance: FOLIC ACID
  3. KRYSTEXXA [Suspect]
     Active Substance: PEGLOTICASE
     Indication: GOUTY TOPHUS
     Dosage: 8MG IV EVERY 2 WEEKS
     Route: 042
     Dates: start: 20200625, end: 20200709

REACTIONS (4)
  - Gastrointestinal haemorrhage [Recovering/Resolving]
  - Anaemia [Recovering/Resolving]
  - Pyrexia [Recovered/Resolved]
  - Myelosuppression [Unknown]

NARRATIVE: CASE EVENT DATE: 20200721
